FAERS Safety Report 15441766 (Version 2)
Quarter: 2020Q3

REPORT INFORMATION
  Report Type: Report from Study
  Country: AU (occurrence: AU)
  Receive Date: 20180928
  Receipt Date: 20190130
  Transmission Date: 20201105
  Serious: Yes (Hospitalization)
  Sender: FDA-Public Use
  Company Number: AU-ASTRAZENECA-2018SF23431

PATIENT
  Age: 45 Year
  Sex: Male
  Weight: 147.2 kg

DRUGS (2)
  1. AMP?514. [Suspect]
     Active Substance: AMP-514
     Indication: NEOPLASM MALIGNANT
     Route: 042
     Dates: start: 20180222
  2. MEDI4736 [Suspect]
     Active Substance: DURVALUMAB
     Indication: NEOPLASM MALIGNANT
     Route: 042
     Dates: start: 20180222

REACTIONS (1)
  - Colitis microscopic [Recovered/Resolved]

NARRATIVE: CASE EVENT DATE: 20180717
